FAERS Safety Report 12673283 (Version 2)
Quarter: 2016Q4

REPORT INFORMATION
  Report Type: Spontaneous
  Country: IT (occurrence: IT)
  Receive Date: 20160822
  Receipt Date: 20161206
  Transmission Date: 20170207
  Serious: Yes (Other)
  Sender: FDA-Public Use
  Company Number: IT-PFIZER INC-2016375663

PATIENT
  Age: 88 Year
  Sex: Female

DRUGS (6)
  1. DELTACORTENE [Concomitant]
     Active Substance: PREDNISONE
     Dosage: 12.5 MG, UNK
  2. LEVOFLOXACIN. [Concomitant]
     Active Substance: LEVOFLOXACIN
     Dosage: 1500 MG, UNK
  3. NITROGLYCERIN. [Suspect]
     Active Substance: NITROGLYCERIN
     Dosage: 10 MG, DAILY
     Route: 062
  4. FUROSEMIDE. [Interacting]
     Active Substance: FUROSEMIDE
     Dosage: 25 MG, DAILY
  5. LANSOPRAZOLE. [Concomitant]
     Active Substance: LANSOPRAZOLE
     Dosage: 30 MG, UNK
  6. CLEXANE [Concomitant]
     Active Substance: ENOXAPARIN SODIUM
     Dosage: 8000 IU, UNK

REACTIONS (3)
  - Drug interaction [Recovering/Resolving]
  - Hypokalaemia [Recovering/Resolving]
  - Syncope [Recovering/Resolving]

NARRATIVE: CASE EVENT DATE: 20160726
